FAERS Safety Report 7269507-6 (Version None)
Quarter: 2011Q1

REPORT INFORMATION
  Report Type: 
  Country: None (occurrence: None)
  Receive Date: 20110202
  Receipt Date: 20101217
  Transmission Date: 20110831
  Serious: Yes (Other)
  Sender: FDA-Public Use
  Company Number: NO-BAYER-2010-003380

PATIENT
  Sex: Female
  Weight: 76 kg

DRUGS (2)
  1. MIRENA [Suspect]
     Indication: CONTRACEPTION
     Dosage: UNK
     Route: 015
     Dates: start: 20101209, end: 20101209
  2. MIRENA [Suspect]
     Indication: METRORRHAGIA
     Dosage: 20 MCG/24HR, CONT
     Route: 015
     Dates: end: 20101209

REACTIONS (2)
  - UTERINE PERFORATION [None]
  - AMENORRHOEA [None]
